FAERS Safety Report 24920965 (Version 1)
Quarter: 2025Q1

REPORT INFORMATION
  Report Type: Spontaneous
  Country: US (occurrence: US)
  Receive Date: 20250204
  Receipt Date: 20250204
  Transmission Date: 20250409
  Serious: Yes (Other)
  Sender: AMGEN
  Company Number: US-AMGEN-USASP2025019471

PATIENT

DRUGS (4)
  1. CARFILZOMIB [Suspect]
     Active Substance: CARFILZOMIB
     Indication: Plasma cell myeloma refractory
     Route: 040
  2. CARFILZOMIB [Suspect]
     Active Substance: CARFILZOMIB
     Route: 040
  3. DEXAMETHASONE [Suspect]
     Active Substance: DEXAMETHASONE
     Indication: Plasma cell myeloma refractory
     Route: 040
  4. PELAREOREP [Suspect]
     Active Substance: PELAREOREP
     Indication: Plasma cell myeloma refractory
     Route: 065

REACTIONS (14)
  - Lymphopenia [Unknown]
  - Thrombocytopenia [Unknown]
  - Plasma cell myeloma [Unknown]
  - Hypertension [Unknown]
  - Anaemia [Unknown]
  - Dyspnoea exertional [Unknown]
  - Myalgia [Unknown]
  - Pyrexia [Unknown]
  - Nausea [Unknown]
  - Diarrhoea [Unknown]
  - Therapy partial responder [Unknown]
  - Fatigue [Unknown]
  - Therapy non-responder [Unknown]
  - Malaise [Unknown]
